FAERS Safety Report 5777324-9 (Version None)
Quarter: 2008Q2

REPORT INFORMATION
  Report Type: 
  Country: None (occurrence: None)
  Receive Date: 20080618
  Receipt Date: 20080610
  Transmission Date: 20081010
  Serious: Yes (Hospitalization)
  Sender: FDA-Public Use
  Company Number: PHHO2008US07516

PATIENT
  Sex: Male

DRUGS (1)
  1. LOPRESSOR [Suspect]

REACTIONS (2)
  - CHEST PAIN [None]
  - SYNCOPE [None]
